FAERS Safety Report 21634688 (Version 1)
Quarter: 2022Q4

REPORT INFORMATION
  Report Type: Report from Study
  Country: US (occurrence: US)
  Receive Date: 20221123
  Receipt Date: 20221123
  Transmission Date: 20230113
  Serious: No
  Sender: FDA-Public Use
  Company Number: US-ABBVIE-22K-163-4457598-00

PATIENT
  Age: 65 Year
  Sex: Female
  Weight: 75.749 kg

DRUGS (15)
  1. HUMIRA [Suspect]
     Active Substance: ADALIMUMAB
     Indication: Crohn^s disease
     Dosage: CITRATE FREE, STRENGTH 40 MG
     Route: 058
     Dates: start: 2022
  2. HUMIRA [Suspect]
     Active Substance: ADALIMUMAB
     Dosage: STRENGTH 40 MG
     Route: 058
     Dates: start: 20220715
  3. Cardizem (Diltiazem hydrochloride) [Concomitant]
     Indication: Product used for unknown indication
  4. DILTIAZEM HYDROCHLORIDE [Concomitant]
     Active Substance: DILTIAZEM HYDROCHLORIDE
     Indication: Oesophageal spasm
     Route: 048
  5. LISINOPRIL [Concomitant]
     Active Substance: LISINOPRIL
     Indication: Product used for unknown indication
  6. Lisinopril/hctz (Hydrochlorothiazide;Lisinopril) [Concomitant]
     Indication: Hypertension
     Dosage: 9 DAYS
     Route: 048
  7. Cyclobenzaprine HCL (Cyclobenzaprine hydrochloride) [Concomitant]
     Indication: Product used for unknown indication
  8. Cetirizine HCL (Cetirizine hydrochloride) [Concomitant]
     Indication: Product used for unknown indication
  9. ATORVASTATIN CALCIUM [Concomitant]
     Active Substance: ATORVASTATIN CALCIUM
     Indication: Hypercholesterolaemia
     Route: 048
  10. CALCIUM [Concomitant]
     Active Substance: CALCIUM
     Indication: Product used for unknown indication
  11. Trazodone HCL (Trazodone hydrochloride) [Concomitant]
     Indication: Insomnia
     Dosage: 9 HS
     Route: 048
  12. OMEPRAZOLE [Concomitant]
     Active Substance: OMEPRAZOLE
     Indication: Product used for unknown indication
     Route: 048
  13. DOXEPIN HYDROCHLORIDE [Concomitant]
     Active Substance: DOXEPIN HYDROCHLORIDE
     Indication: Product used for unknown indication
  14. Cyclobenzaprine (Cyclobenzaprine hydrochloride) [Concomitant]
     Indication: Product used for unknown indication
     Dosage: 9 HS
     Route: 048
  15. Tamsulosin (Tamsulosin hydrochloride) [Concomitant]
     Indication: Hydronephrosis
     Route: 048
     Dates: end: 20220701

REACTIONS (4)
  - Cellulitis [Recovered/Resolved]
  - Rash macular [Recovered/Resolved]
  - Illness [Unknown]
  - Pyrexia [Recovered/Resolved]

NARRATIVE: CASE EVENT DATE: 20220622
